FAERS Safety Report 4553872-4 (Version None)
Quarter: 2005Q1

REPORT INFORMATION
  Report Type: 
  Country: None (occurrence: None)
  Receive Date: 20050113
  Receipt Date: 20050113
  Transmission Date: 20050727
  Serious: Yes (Hospitalization)
  Sender: FDA-Public Use
  Company Number: None

PATIENT
  Age: 24 Year
  Sex: Male
  Weight: 74.8435 kg

DRUGS (4)
  1. IMITREX [Suspect]
     Indication: MIGRAINE
     Dosage: 6 MG SQ X 1 DOSE
     Route: 058
     Dates: start: 20050102
  2. XYLOCAINE [Concomitant]
  3. O2 [Concomitant]
  4. DEMEROL [Concomitant]

REACTIONS (6)
  - ARTHRALGIA [None]
  - BLOOD PRESSURE INCREASED [None]
  - CHEST PAIN [None]
  - FLUSHING [None]
  - RASH [None]
  - RESPIRATORY RATE INCREASED [None]
